FAERS Safety Report 6534894-0 (Version None)
Quarter: 2010Q1

REPORT INFORMATION
  Report Type: 
  Country: None (occurrence: None)
  Receive Date: 20100112
  Receipt Date: 20100107
  Transmission Date: 20100710
  Serious: Yes (Death, Hospitalization, Other)
  Sender: FDA-Public Use
  Company Number: US-CELGENEUS-163-21880-09111869

PATIENT
  Sex: Male

DRUGS (1)
  1. REVLIMID [Suspect]
     Indication: MULTIPLE MYELOMA
     Route: 048
     Dates: start: 20091105, end: 20091120

REACTIONS (5)
  - DIARRHOEA [None]
  - FAILURE TO THRIVE [None]
  - MYELOMA RECURRENCE [None]
  - NEUTROPENIA [None]
  - RESPIRATORY FAILURE [None]
